FAERS Safety Report 7246745-X (Version None)
Quarter: 2011Q1

REPORT INFORMATION
  Report Type: 
  Country: None (occurrence: None)
  Receive Date: 20110127
  Receipt Date: 20110119
  Transmission Date: 20110831
  Serious: Yes (Hospitalization, Other)
  Sender: FDA-Public Use
  Company Number: US-JNJFOC-20100405013

PATIENT
  Sex: Female

DRUGS (6)
  1. PREDNISONE [Suspect]
     Indication: PNEUMONIA
     Route: 048
  2. LEVAQUIN [Suspect]
     Indication: PNEUMONIA
     Route: 048
  3. SEROQUEL [Concomitant]
     Indication: SLEEP DISORDER
     Route: 065
  4. LEVAQUIN [Suspect]
     Route: 042
  5. PROZAC [Concomitant]
     Indication: SLEEP DISORDER
     Route: 065
  6. STEROIDS NOS [Suspect]
     Indication: ILL-DEFINED DISORDER
     Route: 065

REACTIONS (4)
  - MENISCUS LESION [None]
  - BURSITIS [None]
  - JOINT INJURY [None]
  - ROTATOR CUFF SYNDROME [None]
